FAERS Safety Report 6731436-1 (Version None)
Quarter: 2010Q2

REPORT INFORMATION
  Report Type: 
  Country: None (occurrence: None)
  Receive Date: 20100518
  Receipt Date: 20100518
  Transmission Date: 20101027
  Serious: Yes (Hospitalization)
  Sender: FDA-Public Use
  Company Number: None

PATIENT
  Age: 4 Year
  Sex: Female
  Weight: 18 kg

DRUGS (1)
  1. ISOTRETINOIN [Suspect]
     Indication: NEUROBLASTOMA
     Dosage: 60MG BID PO
     Route: 047

REACTIONS (1)
  - HYPERCALCAEMIA [None]
